FAERS Safety Report 4798835-9 (Version None)
Quarter: 2005Q4

REPORT INFORMATION
  Report Type: 
  Country: None (occurrence: None)
  Receive Date: 20051014
  Receipt Date: 20050930
  Transmission Date: 20060501
  Serious: Yes (Hospitalization, Other)
  Sender: FDA-Public Use
  Company Number: US-KINGPHARMUSA00001-K200501278

PATIENT
  Age: 35 Year
  Sex: Female
  Weight: 81 kg

DRUGS (2)
  1. PITOCIN [Suspect]
     Indication: UTERINE HYPOTONUS
     Route: 042
     Dates: start: 20050301, end: 20050301
  2. SPINAL ANESTHESIA [Concomitant]
     Indication: LABOUR PAIN
     Route: 019
     Dates: start: 20050301, end: 20050301

REACTIONS (7)
  - ANAEMIA [None]
  - APNOEA [None]
  - CAESAREAN SECTION [None]
  - CEPHALO-PELVIC DISPROPORTION [None]
  - CONSTIPATION [None]
  - PAIN [None]
  - POSTPARTUM HAEMORRHAGE [None]
